FAERS Safety Report 9083946 (Version 1)
Quarter: 2013Q1

REPORT INFORMATION
  Report Type: Spontaneous
  Country: CA (occurrence: CA)
  Receive Date: 20130130
  Receipt Date: 20130130
  Transmission Date: 20140127
  Serious: Yes (Other)
  Sender: FDA-Public Use
  Company Number: CA-PFIZER INC-2012324655

PATIENT
  Age: 28 Year
  Sex: Male
  Weight: 72 kg

DRUGS (1)
  1. CHAMPIX [Suspect]
     Indication: SMOKING CESSATION THERAPY
     Dosage: 0.5 MG, WEEK 1
     Route: 048
     Dates: start: 20120922, end: 20120928

REACTIONS (4)
  - Psychotic disorder [Recovered/Resolved]
  - Anger [Recovered/Resolved]
  - Mental status changes [Recovered/Resolved]
  - Tobacco user [Not Recovered/Not Resolved]
